FAERS Safety Report 13255528 (Version 3)
Quarter: 2017Q1

REPORT INFORMATION
  Report Type: Report from Study
  Country: US (occurrence: US)
  Receive Date: 20170221
  Receipt Date: 20170331
  Transmission Date: 20170428
  Serious: Yes (Death, Hospitalization, Other)
  Sender: FDA-Public Use
  Company Number: US-009507513-1702USA007084

PATIENT
  Age: 80 Year
  Sex: Male

DRUGS (2)
  1. KEYTRUDA [Suspect]
     Active Substance: PEMBROLIZUMAB
     Indication: METASTASES TO LIVER
  2. KEYTRUDA [Suspect]
     Active Substance: PEMBROLIZUMAB
     Indication: LUNG NEOPLASM MALIGNANT
     Dosage: UNK
     Route: 042
     Dates: start: 20170131

REACTIONS (6)
  - Abdominal pain [Unknown]
  - Malignant neoplasm progression [Fatal]
  - Malaise [Unknown]
  - Hepatic failure [Fatal]
  - Dehydration [Unknown]
  - Product use issue [Unknown]

NARRATIVE: CASE EVENT DATE: 20170214
